FAERS Safety Report 8908531 (Version 2)
Quarter: 2012Q4

REPORT INFORMATION
  Report Type: 
  Country: CA (occurrence: CA)
  Receive Date: 20121114
  Receipt Date: 20121212
  Transmission Date: 20130627
  Serious: Yes (Other)
  Sender: FDA-Public Use
  Company Number: CA-PFIZER INC-2012282876

PATIENT
  Age: 58 Year
  Sex: Male

DRUGS (2)
  1. LYRICA [Suspect]
     Indication: KNEE PAIN
     Dosage: 50 mg, 1x/day at bedtime
     Route: 048
     Dates: start: 20121110
  2. TRAMACET [Suspect]
     Indication: KNEE PAIN
     Dosage: 325-37.5 mg, every 4 hrs
     Route: 048
     Dates: start: 20121110, end: 20121111

REACTIONS (5)
  - Angina pectoris [Not Recovered/Not Resolved]
  - Hyperhidrosis [Recovered/Resolved]
  - Nausea [Recovered/Resolved]
  - Malaise [Not Recovered/Not Resolved]
  - Off label use [Unknown]
